FAERS Safety Report 9799080 (Version 2)
Quarter: 2014Q1

REPORT INFORMATION
  Report Type: Spontaneous
  Country: US (occurrence: US)
  Receive Date: 20140106
  Receipt Date: 20140106
  Transmission Date: 20141002
  Serious: No
  Sender: FDA-Public Use
  Company Number: US-GILEAD-2010-0032354

PATIENT
  Age: 72 Year
  Sex: Male

DRUGS (10)
  1. LETAIRIS [Suspect]
     Indication: PULMONARY ARTERIAL HYPERTENSION
     Route: 048
     Dates: start: 20100929, end: 20101010
  2. VERAPAMIL [Concomitant]
  3. AVAPRO [Concomitant]
  4. METOPROLOL ER [Concomitant]
  5. WARFARIN [Concomitant]
  6. FUROSEMIDE [Concomitant]
  7. SIMVASTATIN [Concomitant]
  8. METFORMIN [Concomitant]
  9. TRAMADOL [Concomitant]
  10. POTASSIUM [Concomitant]

REACTIONS (5)
  - Diarrhoea [Not Recovered/Not Resolved]
  - Fatigue [Unknown]
  - Dizziness [Unknown]
  - Blood glucose decreased [Not Recovered/Not Resolved]
  - Vision blurred [Unknown]
